FAERS Safety Report 10445005 (Version 7)
Quarter: 2015Q3

REPORT INFORMATION
  Report Type: Spontaneous
  Country: US (occurrence: US)
  Receive Date: 20140910
  Receipt Date: 20150813
  Transmission Date: 20151125
  Serious: Yes (Hospitalization, Other)
  Sender: FDA-Public Use
  Company Number: US-009507513-1409USA003582

PATIENT
  Sex: Female
  Weight: 68.27 kg

DRUGS (5)
  1. FOSAMAX [Suspect]
     Active Substance: ALENDRONATE SODIUM
     Dosage: 70 MG, WEEKLY
     Route: 048
     Dates: start: 2001, end: 2006
  2. FOSAMAX [Suspect]
     Active Substance: ALENDRONATE SODIUM
     Dosage: 80 MG, QW
     Route: 048
     Dates: start: 20000602, end: 2001
  3. FOSAMAX PLUS D [Suspect]
     Active Substance: ALENDRONATE SODIUM\CHOLECALCIFEROL
     Indication: OSTEOPOROSIS
     Dosage: 70 MG, WEEKLY
     Route: 048
     Dates: start: 2006, end: 2011
  4. FOSAMAX [Suspect]
     Active Substance: ALENDRONATE SODIUM
     Indication: OSTEOPOROSIS
     Dosage: UNK
     Route: 048
     Dates: start: 1999
  5. FOSAMAX [Suspect]
     Active Substance: ALENDRONATE SODIUM
     Dosage: 40 MG, BIW
     Route: 048
     Dates: start: 20000202, end: 20000602

REACTIONS (50)
  - Dehydration [Unknown]
  - Gastrooesophageal reflux disease [Unknown]
  - Lower limb fracture [Recovering/Resolving]
  - Knee arthroplasty [Recovered/Resolved]
  - Grief reaction [Recovered/Resolved]
  - Osteoarthritis [Not Recovered/Not Resolved]
  - Ligament sprain [Recovering/Resolving]
  - Breast conserving surgery [Unknown]
  - Dyspnoea exertional [Unknown]
  - Fracture nonunion [Recovered/Resolved]
  - Foot fracture [Unknown]
  - Femur fracture [Recovered/Resolved]
  - Fall [Unknown]
  - Bladder operation [Unknown]
  - Mental status changes [Recovered/Resolved]
  - Pubis fracture [Unknown]
  - Osteoarthritis [Not Recovered/Not Resolved]
  - Arthralgia [Unknown]
  - Hypercholesterolaemia [Unknown]
  - Head injury [Unknown]
  - Hysterectomy [Unknown]
  - Lung operation [Unknown]
  - Bursa disorder [Unknown]
  - Acute kidney injury [Recovered/Resolved]
  - Spinal operation [Unknown]
  - Decubitus ulcer [Unknown]
  - Fall [Unknown]
  - Transfusion [Unknown]
  - Intervertebral disc degeneration [Unknown]
  - Fall [Unknown]
  - Rotator cuff repair [Unknown]
  - Gastritis [Recovered/Resolved]
  - Fall [Unknown]
  - Urinary tract infection [Not Recovered/Not Resolved]
  - Pollakiuria [Unknown]
  - Metabolic disorder [Unknown]
  - Anaemia postoperative [Unknown]
  - Musculoskeletal pain [Unknown]
  - Back pain [Not Recovered/Not Resolved]
  - Bladder disorder [Unknown]
  - Abdominal pain lower [Recovered/Resolved]
  - Nausea [Unknown]
  - Foot fracture [Unknown]
  - Appendicectomy [Unknown]
  - Prescribed overdose [Unknown]
  - Anaemia [Unknown]
  - Medical device complication [Recovered/Resolved]
  - Surgery [Unknown]
  - Spinal column stenosis [Not Recovered/Not Resolved]
  - Stress fracture [Unknown]

NARRATIVE: CASE EVENT DATE: 2000
